FAERS Safety Report 7864116-X (Version None)
Quarter: 2011Q4

REPORT INFORMATION
  Report Type: 
  Country: None (occurrence: None)
  Receive Date: 20111028
  Receipt Date: 20111018
  Transmission Date: 20120403
  Serious: Yes (Hospitalization, Other)
  Sender: FDA-Public Use
  Company Number: DE-JNJFOC-20110106928

PATIENT
  Sex: Male

DRUGS (2)
  1. REMICADE [Suspect]
     Route: 042
     Dates: start: 20091101
  2. REMICADE [Suspect]
     Indication: PSORIASIS
     Route: 042
     Dates: start: 20101001, end: 20101201

REACTIONS (6)
  - SYSTEMIC LUPUS ERYTHEMATOSUS [None]
  - PANCYTOPENIA [None]
  - AUTOIMMUNE DISORDER [None]
  - PSORIASIS [None]
  - PROTEINURIA [None]
  - HAEMOGLOBIN DECREASED [None]
